FAERS Safety Report 14364793 (Version 1)
Quarter: 2018Q1

REPORT INFORMATION
  Report Type: Spontaneous
  Country: US (occurrence: US)
  Receive Date: 20180106
  Receipt Date: 20180106
  Transmission Date: 20180509
  Serious: Yes (Other)
  Sender: FDA-Public Use
  Company Number: None

PATIENT
  Age: 39 Year
  Sex: Female
  Weight: 58.5 kg

DRUGS (2)
  1. VYVANSE [Concomitant]
     Active Substance: LISDEXAMFETAMINE DIMESYLATE
  2. DESVENLAFAXINE. [Suspect]
     Active Substance: DESVENLAFAXINE
     Indication: DEPRESSION
     Dosage: ?          QUANTITY:30 TABLET(S);?
     Route: 048
     Dates: start: 20180105, end: 20180106

REACTIONS (7)
  - Drug ineffective [None]
  - Dizziness [None]
  - Insurance issue [None]
  - Nausea [None]
  - Product quality issue [None]
  - Product substitution issue [None]
  - Vision blurred [None]

NARRATIVE: CASE EVENT DATE: 20180106
